FAERS Safety Report 4674095-4 (Version None)
Quarter: 2005Q2

REPORT INFORMATION
  Report Type: 
  Country: None (occurrence: None)
  Receive Date: 20050524
  Receipt Date: 20050524
  Transmission Date: 20051028
  Serious: Yes (Life-Threatening, Hospitalization)
  Sender: FDA-Public Use
  Company Number: None

PATIENT
  Age: 64 Year
  Sex: Male
  Weight: 67 kg

DRUGS (11)
  1. WARFARIN 5 MG [Suspect]
     Indication: PERIPHERAL VASCULAR DISORDER
     Dosage: 12.5 MG QD ORAL
     Route: 048
     Dates: start: 20050301, end: 20050515
  2. WARFARIN 5 MG [Suspect]
     Indication: STENT PLACEMENT
     Dosage: 12.5 MG QD ORAL
     Route: 048
     Dates: start: 20050301, end: 20050515
  3. AMLODIPINE BESYLATE [Concomitant]
  4. ATENOLOL [Concomitant]
  5. CLOPIDOGREL BISULFATE [Concomitant]
  6. CODEINE 30/ACETAMINOPHEN [Concomitant]
  7. LISINOPRIL [Concomitant]
  8. NITROGLYCERIN [Concomitant]
  9. OXYCODONE HCL [Concomitant]
  10. SERTRALINE HCL [Concomitant]
  11. SIMVASTATIN [Concomitant]

REACTIONS (6)
  - CONTUSION [None]
  - DIZZINESS [None]
  - FAECES DISCOLOURED [None]
  - HAEMATOCRIT DECREASED [None]
  - INTERNATIONAL NORMALISED RATIO INCREASED [None]
  - TREATMENT NONCOMPLIANCE [None]
